FAERS Safety Report 18816864 (Version 1)
Quarter: 2021Q1

REPORT INFORMATION
  Report Type: Spontaneous
  Country: PL (occurrence: PL)
  Receive Date: 20210201
  Receipt Date: 20210201
  Transmission Date: 20210419
  Serious: Yes (Other)
  Sender: FDA-Public Use
  Company Number: PL-JNJFOC-20210135177

PATIENT
  Age: 42 Year
  Sex: Male

DRUGS (7)
  1. DUROGESIC [Suspect]
     Active Substance: FENTANYL
     Indication: MASTOCYTOSIS
     Route: 065
  2. METAMIZOLE [Suspect]
     Active Substance: METAMIZOLE
     Indication: MASTOCYTOSIS
     Route: 065
  3. MORPHINE [Suspect]
     Active Substance: MORPHINE
     Indication: MASTOCYTOSIS
     Route: 065
  4. TRAMADOL. [Suspect]
     Active Substance: TRAMADOL
     Indication: MASTOCYTOSIS
     Route: 048
  5. PARACETAMOL [Suspect]
     Active Substance: ACETAMINOPHEN
     Indication: MASTOCYTOSIS
     Route: 065
  6. KETOPROFEN. [Suspect]
     Active Substance: KETOPROFEN
     Indication: MASTOCYTOSIS
     Route: 065
  7. IBUPROFEN. [Suspect]
     Active Substance: IBUPROFEN
     Indication: MASTOCYTOSIS
     Route: 065

REACTIONS (3)
  - Gingival pain [Not Recovered/Not Resolved]
  - Teething [Not Recovered/Not Resolved]
  - Anaphylactic reaction [Not Recovered/Not Resolved]
